FAERS Safety Report 7243585-2 (Version None)
Quarter: 2011Q1

REPORT INFORMATION
  Report Type: 
  Country: None (occurrence: None)
  Receive Date: 20110125
  Receipt Date: 20110118
  Transmission Date: 20110831
  Serious: Yes (Other)
  Sender: FDA-Public Use
  Company Number: FR-GENZYME-THYM-1002274

PATIENT
  Sex: Female

DRUGS (35)
  1. CYCLOSPORINE [Suspect]
     Dosage: 100 MG, BID
     Route: 042
     Dates: start: 20101203, end: 20101205
  2. CYCLOSPORINE [Suspect]
     Dosage: 70 MG, BID
     Route: 048
     Dates: start: 20101209
  3. ATENOLOL [Concomitant]
     Indication: PRODUCT USED FOR UNKNOWN INDICATION
  4. CYCLOSPORINE [Suspect]
     Indication: PROPHYLAXIS
     Dosage: 130 MG, UNK
     Dates: start: 20101129, end: 20101201
  5. ALLOPURINOL [Concomitant]
     Indication: PRODUCT USED FOR UNKNOWN INDICATION
  6. NEORAL [Concomitant]
     Indication: PRODUCT USED FOR UNKNOWN INDICATION
     Dosage: 60 G, QD
     Dates: start: 20101224
  7. LOXEN [Concomitant]
     Indication: PRODUCT USED FOR UNKNOWN INDICATION
     Dosage: UNK
     Dates: start: 20101224
  8. ZOPHREN [Concomitant]
     Indication: PRODUCT USED FOR UNKNOWN INDICATION
  9. BACTRIM [Concomitant]
     Indication: PRODUCT USED FOR UNKNOWN INDICATION
  10. GAVISCON [Concomitant]
     Indication: PROPHYLAXIS
  11. PREDNISONE [Concomitant]
     Indication: PRODUCT USED FOR UNKNOWN INDICATION
     Dosage: 10 MG, UNK
     Dates: end: 20101125
  12. THYMOGLOBULIN [Suspect]
     Indication: BONE MARROW CONDITIONING REGIMEN
     Dosage: 166 MG, UNK
     Route: 042
     Dates: start: 20101129, end: 20101201
  13. MYFORTIC [Concomitant]
     Indication: PRODUCT USED FOR UNKNOWN INDICATION
     Dosage: UNK
     Dates: start: 20101224
  14. TRIFLUCAN [Concomitant]
     Indication: PRODUCT USED FOR UNKNOWN INDICATION
     Dosage: UNK
     Dates: start: 20101224
  15. PROZAC [Concomitant]
     Indication: PRODUCT USED FOR UNKNOWN INDICATION
  16. BUSULFAN [Suspect]
     Indication: BONE MARROW CONDITIONING REGIMEN
     Dosage: 328 MG, UNK
     Route: 043
     Dates: start: 20101125, end: 20101128
  17. SOLU-MEDROL [Suspect]
     Indication: BONE MARROW CONDITIONING REGIMEN
     Dosage: 200 MG, UNK
     Route: 042
     Dates: start: 20101129, end: 20101202
  18. CYCLOSPORINE [Suspect]
     Dosage: 120 MG, BID
     Route: 042
     Dates: start: 20101202, end: 20101202
  19. DELURSAN [Concomitant]
     Indication: PRODUCT USED FOR UNKNOWN INDICATION
  20. DELURSAN [Concomitant]
     Dosage: UNK
     Dates: start: 20101224
  21. FUNGIZONE [Suspect]
     Indication: PRODUCT USED FOR UNKNOWN INDICATION
     Dosage: UNK
     Dates: start: 20101224
  22. ZELITREX [Concomitant]
     Indication: PRODUCT USED FOR UNKNOWN INDICATION
     Dosage: UNK
     Dates: start: 20101224
  23. MOPRAL [Concomitant]
     Indication: PRODUCT USED FOR UNKNOWN INDICATION
     Dosage: UNK
     Dates: start: 20101224
  24. PREDNISONE [Concomitant]
     Dosage: 5 MG, UNK
     Dates: start: 20101125
  25. FLUDARA [Suspect]
     Indication: BONE MARROW CONDITIONING REGIMEN
     Dosage: 64 MG, UNK
     Route: 042
     Dates: start: 20101125, end: 20101128
  26. DEBRIDAT [Concomitant]
     Indication: PAIN
  27. MAG 2 [Concomitant]
     Indication: PRODUCT USED FOR UNKNOWN INDICATION
     Dosage: UNK
     Dates: start: 20101224
  28. HEPARIN [Concomitant]
     Indication: PRODUCT USED FOR UNKNOWN INDICATION
  29. MORPHINE [Concomitant]
     Indication: PRODUCT USED FOR UNKNOWN INDICATION
  30. SERESTA [Concomitant]
     Indication: PRODUCT USED FOR UNKNOWN INDICATION
  31. CYCLOSPORINE [Suspect]
     Dosage: 80 MG, BID
     Dates: start: 20101206, end: 20101208
  32. ACUPAN [Concomitant]
     Indication: PAIN
  33. CLAMOXYL [Concomitant]
     Indication: PRODUCT USED FOR UNKNOWN INDICATION
     Dosage: UNK
     Dates: start: 20101224
  34. RIVOTRIL [Concomitant]
     Indication: PRODUCT USED FOR UNKNOWN INDICATION
     Dosage: UNK
     Dates: start: 20101224
  35. NEXIUM [Concomitant]
     Indication: PROPHYLAXIS

REACTIONS (1)
  - PANCREATITIS ACUTE [None]
